FAERS Safety Report 11283914 (Version 2)
Quarter: 2015Q4

REPORT INFORMATION
  Report Type: Report from Study
  Country: US (occurrence: US)
  Receive Date: 20150720
  Receipt Date: 20151020
  Transmission Date: 20160304
  Serious: Yes (Other)
  Sender: FDA-Public Use
  Company Number: US-AMGEN-USASP2015071271

PATIENT
  Age: 62 Year
  Sex: Female

DRUGS (1)
  1. ENBREL [Suspect]
     Active Substance: ETANERCEPT
     Indication: RHEUMATOID ARTHRITIS
     Dosage: 50 MG, QWK
     Route: 065
     Dates: start: 20150609, end: 20150630

REACTIONS (11)
  - Sinus disorder [Unknown]
  - Cough [Recovering/Resolving]
  - Dysgeusia [Unknown]
  - Parosmia [Unknown]
  - Malaise [Unknown]
  - Respiratory tract congestion [Unknown]
  - Chest pain [Recovering/Resolving]
  - Lower respiratory tract infection [Unknown]
  - Sinusitis [Unknown]
  - Decreased appetite [Unknown]
  - Device malfunction [Unknown]

NARRATIVE: CASE EVENT DATE: 2015
